FAERS Safety Report 21533022 (Version 1)
Quarter: 2022Q4

REPORT INFORMATION
  Report Type: Spontaneous
  Country: US (occurrence: US)
  Receive Date: 20221101
  Receipt Date: 20221101
  Transmission Date: 20230112
  Serious: Yes (Other)
  Sender: FDA-Public Use
  Company Number: US-BRISTOL-MYERS SQUIBB COMPANY-2022-128600

PATIENT
  Age: 68 Year
  Sex: Female

DRUGS (1)
  1. POMALYST [Suspect]
     Active Substance: POMALIDOMIDE
     Indication: Plasma cell myeloma in remission
     Dosage: DOSE : 1 MG;     FREQ : ^1 MG , 1 CAPSULE BY MOUTH ONCE DAILY  FOR 21 DAYS ON 7 DAYS OFF ^
     Route: 048

REACTIONS (1)
  - Plasma cell myeloma [Unknown]
